FAERS Safety Report 9644067 (Version 2)
Quarter: 2013Q4

REPORT INFORMATION
  Report Type: Spontaneous
  Country: US (occurrence: US)
  Receive Date: 20131024
  Receipt Date: 20131118
  Transmission Date: 20140711
  Serious: Yes (Other)
  Sender: FDA-Public Use
  Company Number: US-BAXTER-2013BAX040986

PATIENT
  Age: 41 Year
  Sex: Female
  Weight: 134.09 kg

DRUGS (5)
  1. GAMMAGARD LIQUID [Suspect]
     Indication: HYPOGAMMAGLOBULINAEMIA
     Route: 058
     Dates: start: 20131010, end: 20131010
  2. HIZENTRA [Concomitant]
     Indication: PRODUCT USED FOR UNKNOWN INDICATION
     Route: 065
  3. TYLENOL [Concomitant]
     Indication: PREMEDICATION
     Route: 065
     Dates: start: 20131010
  4. TYLENOL [Concomitant]
     Indication: ADVERSE EVENT
  5. XYZAL [Concomitant]
     Indication: PREMEDICATION
     Route: 065
     Dates: start: 20131010, end: 20131010

REACTIONS (2)
  - Anaphylactic reaction [Recovered/Resolved]
  - Headache [Recovered/Resolved]
